FAERS Safety Report 19892730 (Version 1)
Quarter: 2021Q3

REPORT INFORMATION
  Report Type: Spontaneous
  Country: GB (occurrence: GB)
  Receive Date: 20210929
  Receipt Date: 20210929
  Transmission Date: 20211014
  Serious: Yes (Disabling, Other)
  Sender: FDA-Public Use
  Company Number: GB-AUROBINDO-AUR-APL-2021-040191

PATIENT
  Age: 82 Year
  Sex: Female

DRUGS (2)
  1. ALENDRONIC ACID [Suspect]
     Active Substance: ALENDRONIC ACID
     Indication: ILL-DEFINED DISORDER
     Dosage: UNK
     Route: 065
  2. DENOSUMAB [Suspect]
     Active Substance: DENOSUMAB
     Indication: OSTEOPOROSIS
     Dosage: 60 MILLIGRAM (SC EVER SIX MONTHS)
     Route: 058
     Dates: start: 20190401, end: 20201201

REACTIONS (2)
  - Medication error [Unknown]
  - Osteonecrosis of external auditory canal [Not Recovered/Not Resolved]

NARRATIVE: CASE EVENT DATE: 20200301
